FAERS Safety Report 19072337 (Version 1)
Quarter: 2021Q1

REPORT INFORMATION
  Report Type: Spontaneous
  Country: US (occurrence: US)
  Receive Date: 20210329
  Receipt Date: 20210329
  Transmission Date: 20210420
  Serious: Yes (Other)
  Sender: FDA-Public Use
  Company Number: None

PATIENT
  Age: 43 Year
  Sex: Female
  Weight: 117 kg

DRUGS (8)
  1. CARTIA [Concomitant]
  2. AMLODIPINE [Concomitant]
     Active Substance: AMLODIPINE BESYLATE
  3. VALTREX [Concomitant]
     Active Substance: VALACYCLOVIR HYDROCHLORIDE
  4. PROAIR HFA [Concomitant]
     Active Substance: ALBUTEROL SULFATE
  5. SYMBICORT [Suspect]
     Active Substance: BUDESONIDE\FORMOTEROL FUMARATE DIHYDRATE
     Indication: ASTHMA
     Dosage: ?          QUANTITY:2 PUFF(S);?
     Route: 055
     Dates: start: 20201230, end: 20210102
  6. VITAMIN C [Concomitant]
     Active Substance: ASCORBIC ACID
  7. B VITAMIN SUPPLEMENT [Concomitant]
  8. VIT D [Concomitant]
     Active Substance: VITAMIN D NOS

REACTIONS (2)
  - Swelling face [None]
  - Facial pain [None]

NARRATIVE: CASE EVENT DATE: 20210101
